FAERS Safety Report 17218938 (Version 1)
Quarter: 2019Q4

REPORT INFORMATION
  Report Type: Spontaneous
  Country: US (occurrence: US)
  Receive Date: 20191207
  Receipt Date: 20191207
  Transmission Date: 20200122
  Serious: No
  Sender: FDA-Public Use
  Company Number: None

PATIENT
  Age: 37 Year
  Sex: Female

DRUGS (1)
  1. HUMIRA [Suspect]
     Active Substance: ADALIMUMAB
     Indication: ANKYLOSING SPONDYLITIS
     Dosage: ?          OTHER DOSE:40/0.4 MG/ML;?
     Route: 058
     Dates: start: 20191024

REACTIONS (3)
  - Joint swelling [None]
  - Fluid retention [None]
  - Peripheral swelling [None]

NARRATIVE: CASE EVENT DATE: 20191202
